FAERS Safety Report 8522413-9 (Version None)
Quarter: 2012Q3

REPORT INFORMATION
  Report Type: 
  Country: None (occurrence: None)
  Receive Date: 20120719
  Receipt Date: 20120711
  Transmission Date: 20120928
  Serious: Yes (Other)
  Sender: FDA-Public Use
  Company Number: US-ASTRAZENECA-2012SE41436

PATIENT
  Age: 84 Year
  Sex: Female

DRUGS (1)
  1. NEXIUM [Suspect]
     Route: 048

REACTIONS (5)
  - WOUND [None]
  - PAIN IN EXTREMITY [None]
  - BRONCHITIS [None]
  - INFECTION [None]
  - PERIPHERAL VASCULAR DISORDER [None]
